FAERS Safety Report 5777448-6 (Version None)
Quarter: 2008Q2

REPORT INFORMATION
  Report Type: 
  Country: None (occurrence: None)
  Receive Date: 20080618
  Receipt Date: 20080609
  Transmission Date: 20081010
  Serious: Yes (Hospitalization, Other)
  Sender: FDA-Public Use
  Company Number: DE-PFIZER INC-2008044319

PATIENT
  Sex: Male
  Weight: 75 kg

DRUGS (1)
  1. ZITHROMAX [Suspect]
     Indication: SINUSITIS
     Dosage: TEXT:1 TAB
     Route: 048
     Dates: start: 20080322, end: 20080324

REACTIONS (1)
  - APLASTIC ANAEMIA [None]
